FAERS Safety Report 20089862 (Version 1)
Quarter: 2021Q4

REPORT INFORMATION
  Report Type: Spontaneous
  Country: CA (occurrence: CA)
  Receive Date: 20211119
  Receipt Date: 20211119
  Transmission Date: 20220303
  Serious: Yes (Death, Hospitalization, Other)
  Sender: FDA-Public Use
  Company Number: CA-GLAXOSMITHKLINE-CA2021AMR237265

PATIENT
  Age: 36 Year
  Sex: Female

DRUGS (2)
  1. PAXIL [Suspect]
     Active Substance: PAROXETINE HYDROCHLORIDE
     Indication: Social anxiety disorder
     Dosage: UNK
     Route: 065
  2. ATIVAN [Suspect]
     Active Substance: LORAZEPAM
     Indication: Social anxiety disorder
     Dosage: UNK
     Route: 065

REACTIONS (9)
  - Death [Fatal]
  - Pelvic fracture [Unknown]
  - Road traffic accident [Unknown]
  - Abdominal injury [Unknown]
  - Drug dependence [Unknown]
  - Anxiety [Unknown]
  - Mental disorder [Unknown]
  - Intentional product misuse [Unknown]
  - Insomnia [Unknown]

NARRATIVE: CASE EVENT DATE: 20190815
